FAERS Safety Report 7772544-6 (Version None)
Quarter: 2011Q3

REPORT INFORMATION
  Report Type: 
  Country: None (occurrence: None)
  Receive Date: 20110922
  Receipt Date: 20101230
  Transmission Date: 20111222
  Serious: No
  Sender: FDA-Public Use
  Company Number: US-ASTRAZENECA-2010SE61444

PATIENT
  Age: 70 Year
  Sex: Female

DRUGS (5)
  1. SEROQUEL XR [Suspect]
     Indication: MOOD ALTERED
     Route: 048
  2. SEROQUEL XR [Suspect]
     Route: 048
  3. TOPAMAX [Concomitant]
     Indication: HEADACHE
  4. SEROQUEL XR [Suspect]
     Route: 048
     Dates: start: 20101201, end: 20101227
  5. LITHIUM [Concomitant]
     Indication: HEADACHE

REACTIONS (2)
  - IRRITABLE BOWEL SYNDROME [None]
  - LACTOSE INTOLERANCE [None]
